FAERS Safety Report 14414025 (Version 1)
Quarter: 2018Q1

REPORT INFORMATION
  Report Type: Other
  Country: DE (occurrence: DE)
  Receive Date: 20180119
  Receipt Date: 20180119
  Transmission Date: 20180509
  Serious: Yes (Congenital Anomaly, Other)
  Sender: FDA-Public Use
  Company Number: DE-MACLEODS PHARMACEUTICALS US LTD-MAC2018008570

PATIENT

DRUGS (9)
  1. FOLSAEURE [Concomitant]
     Active Substance: FOLIC ACID
     Indication: PROPHYLAXIS OF NEURAL TUBE DEFECT
     Dosage: 4.4 MG, QD, (0. - 39. GESTATIONAL WEEK) 1 TRIMESTER
     Route: 064
     Dates: start: 20161021, end: 20170721
  2. OMEPRAZOLE. [Concomitant]
     Active Substance: OMEPRAZOLE
     Indication: GASTRITIS
     Dosage: 40 MG, QD, (6.4. - 7.5. GESTATIONAL WEEK)
     Route: 064
     Dates: start: 20161206, end: 20161214
  3. DIMENHYDRINATE. [Concomitant]
     Active Substance: DIMENHYDRINATE
     Indication: VOMITING IN PREGNANCY
     Dosage: 50 MG, QD/ TAKEN ON THREE OCCASIONS/DAYS WITHIN THAT TIME FRAME
     Route: 064
     Dates: start: 20161202, end: 20170401
  4. L-THYROXINE SODIUM [Concomitant]
     Active Substance: LEVOTHYROXINE SODIUM
     Indication: HYPOTHYROIDISM
     Dosage: 50 ?G, QD, (0. - 39. GESTATIONAL WEEK)
     Route: 064
     Dates: start: 20161020, end: 20170721
  5. PANTOPRAZOLE [Suspect]
     Active Substance: PANTOPRAZOLE
     Indication: GASTRITIS
     Dosage: 80 MG, QD, (1 TRIMESTER: LONG TERM EXPOSURE)
     Route: 064
  6. ONDANSETRON [Concomitant]
     Active Substance: ONDANSETRON
     Indication: VOMITING IN PREGNANCY
     Dosage: 8 MG, QD, / TAKEN ON THREE OCCASIONS/DAYS WITHIN THAT TIME FRAME, (7.6. - 23.1. GESTATIONAL WEEK)
     Route: 064
     Dates: start: 20161215, end: 20170401
  7. TEARS AGAIN AUGENSPRAY (MP) [Concomitant]
     Indication: SJOGREN^S SYNDROME
     Dosage: UNK, (0.-39. GESTATIONAL WEEK)
     Route: 064
     Dates: start: 20161021, end: 20170721
  8. PROGESTAN [Concomitant]
     Active Substance: PROGESTERONE
     Indication: PROPHYLAXIS OF ABORTION
     Dosage: 200 MG, QD, (IN THE BEGINNING ORALLY, 4.3. - 12.6. GESTATIONAL WEEK)
     Route: 064
     Dates: start: 20161121, end: 20170119
  9. ASPIRIN. [Concomitant]
     Active Substance: ASPIRIN
     Indication: PROPHYLAXIS OF ABORTION
     Dosage: 100 MG, QD, (4.3. - 33.6. GESTATIONAL WEEK)
     Route: 064
     Dates: start: 20161121, end: 20170615

REACTIONS (4)
  - Foetal exposure during pregnancy [Unknown]
  - Large for dates baby [Recovering/Resolving]
  - Developmental hip dysplasia [Recovered/Resolved]
  - Atrial septal defect [Not Recovered/Not Resolved]

NARRATIVE: CASE EVENT DATE: 20170721
